FAERS Safety Report 4515234-5 (Version None)
Quarter: 2004Q4

REPORT INFORMATION
  Report Type: 
  Country: None (occurrence: None)
  Receive Date: 20041126
  Receipt Date: 20041110
  Transmission Date: 20050328
  Serious: Yes (Other)
  Sender: FDA-Public Use
  Company Number: 2004093823

PATIENT
  Age: 52 Year
  Sex: Female

DRUGS (1)
  1. PROVERA [Suspect]
     Indication: BREAST CANCER
     Dosage: ORAL
     Route: 048

REACTIONS (2)
  - ENDOMETRIAL HYPERTROPHY [None]
  - SIGNET-RING CELL CARCINOMA [None]
